FAERS Safety Report 9644258 (Version 1)
Quarter: 2013Q4

REPORT INFORMATION
  Report Type: Spontaneous
  Country: US (occurrence: US)
  Receive Date: 20131025
  Receipt Date: 20131025
  Transmission Date: 20140711
  Serious: Yes (Hospitalization, Other)
  Sender: FDA-Public Use
  Company Number: US-ASTRAZENECA-2013SE77202

PATIENT
  Age: 75 Year
  Sex: Female
  Weight: 64.4 kg

DRUGS (8)
  1. ATENOLOL [Suspect]
     Indication: HYPERTENSION
     Route: 048
  2. CRESTOR [Suspect]
     Indication: BLOOD CHOLESTEROL INCREASED
     Route: 048
     Dates: start: 2009, end: 20131013
  3. MODURECTIC [Concomitant]
     Indication: HYPERTENSION
     Dosage: 60/50 DAILY
     Dates: end: 201208
  4. METFORMIN [Concomitant]
     Indication: DIABETES MELLITUS
  5. NORVASC [Concomitant]
     Indication: HYPERTENSION
  6. LOSARTAN [Concomitant]
     Indication: HYPERTENSION
  7. LEVOXYL [Concomitant]
     Indication: BASEDOW^S DISEASE
     Dosage: 150 MCG DAILY
  8. COQ10 [Concomitant]
     Indication: MUSCLE SPASMS

REACTIONS (7)
  - Peripheral nerve paresis [Not Recovered/Not Resolved]
  - Carpal tunnel syndrome [Unknown]
  - Blood calcium increased [Not Recovered/Not Resolved]
  - Diabetes mellitus [Unknown]
  - Muscle spasms [Recovering/Resolving]
  - Headache [Not Recovered/Not Resolved]
  - Intentional drug misuse [Unknown]
